FAERS Safety Report 8888264 (Version 2)
Quarter: 2012Q4

REPORT INFORMATION
  Report Type: 
  Country: JP (occurrence: JP)
  Receive Date: 20121106
  Receipt Date: 20121217
  Transmission Date: 20130627
  Serious: Yes (Hospitalization)
  Sender: FDA-Public Use
  Company Number: JP-PFIZER INC-2012275209

PATIENT

DRUGS (2)
  1. CORTRIL [Suspect]
     Indication: ACTH ABNORMAL
     Dosage: 10 mg in the morning and 5 mg at noon daily
     Route: 048
  2. CORTRIL [Suspect]
     Dosage: 20 mg in the morning and 10 mg at noon daily
     Route: 048

REACTIONS (2)
  - Fracture [Recovered/Resolved]
  - Blood pressure increased [Recovered/Resolved]
